FAERS Safety Report 8798880 (Version 2)
Quarter: 2012Q4

REPORT INFORMATION
  Report Type: 
  Country: US (occurrence: US)
  Receive Date: 20120920
  Receipt Date: 20121107
  Transmission Date: 20130627
  Serious: Yes (Other)
  Sender: FDA-Public Use
  Company Number: US-PERRIGO-12US007905

PATIENT
  Age: 51 Year
  Sex: Female
  Weight: 58.96 kg

DRUGS (1)
  1. AMMONIUM LACTATE [Suspect]
     Indication: HYPERKERATOSIS
     Dosage: One application to both feet, daily
     Route: 061
     Dates: start: 201207, end: 20120827

REACTIONS (5)
  - Head injury [Recovered/Resolved]
  - Fall [Recovered/Resolved]
  - Musculoskeletal stiffness [Not Recovered/Not Resolved]
  - Musculoskeletal discomfort [Not Recovered/Not Resolved]
  - Headache [Not Recovered/Not Resolved]
